FAERS Safety Report 21163491 (Version 1)
Quarter: 2022Q3

REPORT INFORMATION
  Report Type: Report from Study
  Country: CN (occurrence: None)
  Receive Date: 20220802
  Receipt Date: 20220802
  Transmission Date: 20221026
  Serious: Yes (Death)
  Sender: FDA-Public Use
  Company Number: CN-ROCHE-3150865

PATIENT

DRUGS (8)
  1. ATEZOLIZUMAB [Suspect]
     Active Substance: ATEZOLIZUMAB
     Indication: Hepatocellular carcinoma
     Dosage: H0211B01
     Route: 041
     Dates: start: 20210827, end: 20210827
  2. ATEZOLIZUMAB [Suspect]
     Active Substance: ATEZOLIZUMAB
     Dosage: H0216B02
     Route: 041
     Dates: start: 20210920, end: 20210920
  3. BEVACIZUMAB [Suspect]
     Active Substance: BEVACIZUMAB
     Indication: Hepatocellular carcinoma
     Dosage: H0229B01
     Route: 041
     Dates: start: 20210827, end: 20210827
  4. ENTECAVIR [Concomitant]
     Active Substance: ENTECAVIR
     Indication: Chronic hepatitis B
     Dates: start: 2011
  5. GLYCYRRHIZIN [Concomitant]
     Active Substance: GLYCYRRHIZIN
     Indication: Hepatic function abnormal
     Dosage: 2 DF
     Dates: start: 20210827
  6. GLUTATHIONE [Concomitant]
     Active Substance: GLUTATHIONE
     Indication: Hepatic function abnormal
     Dates: start: 20210826
  7. CYSTEINE\GLYCINE\GLYCYRRHIZIN [Concomitant]
     Active Substance: CYSTEINE\GLYCINE\GLYCYRRHIZIN
     Indication: Hepatic function abnormal
     Dates: start: 20210826
  8. INSULIN GLARGINE [Concomitant]
     Active Substance: INSULIN GLARGINE
     Indication: Diabetes mellitus

REACTIONS (4)
  - Hypertension [Not Recovered/Not Resolved]
  - Proteinuria [Recovered/Resolved]
  - Aspartate aminotransferase increased [Recovered/Resolved]
  - Disease progression [Fatal]

NARRATIVE: CASE EVENT DATE: 20210907
